FAERS Safety Report 6414585-7 (Version None)
Quarter: 2009Q4

REPORT INFORMATION
  Report Type: 
  Country: None (occurrence: None)
  Receive Date: 20091021
  Receipt Date: 20090701
  Transmission Date: 20100525
  Serious: Yes (Death)
  Sender: FDA-Public Use
  Company Number: 2009-04118

PATIENT
  Age: 58 Year

DRUGS (3)
  1. VELCADE [Suspect]
     Indication: MULTIPLE MYELOMA
     Dates: start: 20090301
  2. DEXAMETHASONE [Concomitant]
  3. THALIDOMIDE [Concomitant]

REACTIONS (1)
  - DEATH [None]
